FAERS Safety Report 5485463-5 (Version None)
Quarter: 2007Q4

REPORT INFORMATION
  Report Type: 
  Country: None (occurrence: None)
  Receive Date: 20071015
  Receipt Date: 20070821
  Transmission Date: 20080405
  Serious: Yes (Death, Other)
  Sender: FDA-Public Use
  Company Number: US-PURDUE-USA_2007_0029024

PATIENT
  Age: 26 Year
  Sex: Male

DRUGS (3)
  1. OXYCONTIN [Suspect]
     Indication: BACK PAIN
     Dosage: UNK MG, UNK
     Route: 048
  2. FENTANYL [Suspect]
     Indication: DRUG USE FOR UNKNOWN INDICATION
     Dosage: UNK MG, UNK
  3. CANNABIS [Suspect]
     Indication: DRUG USE FOR UNKNOWN INDICATION
     Dosage: UNK, UNK

REACTIONS (9)
  - ACCIDENTAL OVERDOSE [None]
  - APATHY [None]
  - CONVULSION [None]
  - DRUG DEPENDENCE [None]
  - MALAISE [None]
  - MICTURITION DISORDER [None]
  - NERVOUS SYSTEM DISORDER [None]
  - NERVOUSNESS [None]
  - OVERDOSE [None]
